FAERS Safety Report 7526255-2 (Version None)
Quarter: 2011Q2

REPORT INFORMATION
  Report Type: 
  Country: None (occurrence: None)
  Receive Date: 20110527
  Receipt Date: 20110516
  Transmission Date: 20111010
  Serious: Yes (Other)
  Sender: FDA-Public Use
  Company Number: 923708

PATIENT
  Age: 52 Year
  Sex: Female

DRUGS (1)
  1. LIDOCAINE HCL [Suspect]
     Indication: MASTECTOMY
     Dates: start: 20110310

REACTIONS (3)
  - DEVICE BREAKAGE [None]
  - DEVICE DISLOCATION [None]
  - PROCEDURAL COMPLICATION [None]
